FAERS Safety Report 5205766-9 (Version None)
Quarter: 2007Q1

REPORT INFORMATION
  Report Type: 
  Country: None (occurrence: None)
  Receive Date: 20070111
  Receipt Date: 20070103
  Transmission Date: 20070707
  Serious: Yes (Hospitalization)
  Sender: FDA-Public Use
  Company Number: US-AMGEN-US201150

PATIENT
  Sex: Female

DRUGS (3)
  1. ENBREL [Suspect]
     Indication: RHEUMATOID ARTHRITIS
     Route: 058
     Dates: start: 19991201
  2. PREDNISONE TAB [Concomitant]
  3. MOTRIN [Concomitant]

REACTIONS (6)
  - GASTROENTERITIS VIRAL [None]
  - INFECTION [None]
  - KNEE ARTHROPLASTY [None]
  - MOLE EXCISION [None]
  - RHEUMATOID ARTHRITIS [None]
  - STAPHYLOCOCCAL ABSCESS [None]
